FAERS Safety Report 19210492 (Version 2)
Quarter: 2021Q2

REPORT INFORMATION
  Report Type: Other
  Country: CA (occurrence: CA)
  Receive Date: 20210504
  Receipt Date: 20210624
  Transmission Date: 20210717
  Serious: Yes (Hospitalization, Other)
  Sender: FDA-Public Use
  Company Number: CA-TOLMAR, INC.-21CA026725

PATIENT
  Age: 81 Year
  Sex: Male

DRUGS (2)
  1. ELIGARD [Suspect]
     Active Substance: LEUPROLIDE ACETATE
     Dosage: 30 MG, Q 4 MONTH
     Route: 058
     Dates: start: 20180726
  2. ELIGARD [Suspect]
     Active Substance: LEUPROLIDE ACETATE
     Indication: PROSTATE CANCER
     Dosage: 30 MG, Q 4 MONTH
     Route: 058
     Dates: start: 20210107

REACTIONS (5)
  - Decreased appetite [Unknown]
  - Osteoporosis [Unknown]
  - Spinal fracture [Unknown]
  - Back pain [Unknown]
  - Weight decreased [Unknown]

NARRATIVE: CASE EVENT DATE: 202104
